FAERS Safety Report 26012693 (Version 3)
Quarter: 2025Q4

REPORT INFORMATION
  Report Type: Report from Study
  Country: KR (occurrence: KR)
  Receive Date: 20251107
  Receipt Date: 20251127
  Transmission Date: 20260118
  Serious: Yes (Other)
  Sender: TAKEDA
  Company Number: KR-TAKEDA-2025TUS097325

PATIENT
  Age: 74 Year
  Sex: Female

DRUGS (2)
  1. MOBOCERTINIB [Suspect]
     Active Substance: MOBOCERTINIB
     Indication: Non-small cell lung cancer
     Dosage: 80 MILLIGRAM, QD
     Dates: start: 20200917, end: 20250728
  2. MOBOCERTINIB [Suspect]
     Active Substance: MOBOCERTINIB
     Indication: EGFR gene mutation

REACTIONS (4)
  - Non-small cell lung cancer [Unknown]
  - Metastases to muscle [Unknown]
  - Hypertensive heart disease [Not Recovered/Not Resolved]
  - Periodontal disease [Not Recovered/Not Resolved]

NARRATIVE: CASE EVENT DATE: 20200917
